FAERS Safety Report 18730278 (Version 1)
Quarter: 2021Q1

REPORT INFORMATION
  Report Type: Spontaneous
  Country: US (occurrence: US)
  Receive Date: 20210112
  Receipt Date: 20210112
  Transmission Date: 20210419
  Serious: Yes (Disabling, Other)
  Sender: FDA-Public Use
  Company Number: None

PATIENT
  Age: 52 Year
  Sex: Female
  Weight: 65.25 kg

DRUGS (35)
  1. GABAPENTIN 800 MG [Suspect]
     Active Substance: GABAPENTIN
     Indication: NEURALGIA
     Dosage: ?          QUANTITY:1 TABLET(S);?
     Route: 048
  2. TRAMADOL. [Concomitant]
     Active Substance: TRAMADOL
  3. BUPROPRION [Concomitant]
     Active Substance: BUPROPION
  4. CLONIDINE. [Concomitant]
     Active Substance: CLONIDINE
  5. NAPROXIN [Concomitant]
     Active Substance: NAPROXEN
  6. ROCKY MOUNTAIN THROAT SYRUP [Concomitant]
  7. SENNA [Concomitant]
     Active Substance: SENNA LEAF\SENNOSIDES\SENNOSIDES A AND B
  8. ADVIL [Concomitant]
     Active Substance: IBUPROFEN
  9. MAGNESIUM [Concomitant]
     Active Substance: MAGNESIUM
  10. SLIPPERY ELM [Concomitant]
     Active Substance: ELM
  11. COLACE [Concomitant]
     Active Substance: DOCUSATE SODIUM
  12. TUMS [Concomitant]
     Active Substance: CALCIUM CARBONATE
  13. MAALOX ANTACID [Concomitant]
     Active Substance: ALUMINUM HYDROXIDE\DIMETHICONE\MAGNESIUM HYDROXIDE
  14. MULTIVITAMIN [Concomitant]
     Active Substance: VITAMINS
  15. LIDOCAINE PAIN PATCH [Concomitant]
  16. PREVACID [Concomitant]
     Active Substance: LANSOPRAZOLE
  17. TYLENOL [Concomitant]
     Active Substance: ACETAMINOPHEN
  18. ASPIRIN. [Concomitant]
     Active Substance: ASPIRIN
  19. VITAMIN C [Concomitant]
     Active Substance: ASCORBIC ACID
  20. GABAPENTIN. [Concomitant]
     Active Substance: GABAPENTIN
  21. NASALCROM [Concomitant]
     Active Substance: CROMOLYN SODIUM
  22. FISH OIL [Concomitant]
     Active Substance: FISH OIL
  23. VIT D [Concomitant]
     Active Substance: VITAMIN D NOS
  24. ZINC. [Concomitant]
     Active Substance: ZINC
  25. MONOLAURIN [Concomitant]
  26. MUPIROCIN. [Concomitant]
     Active Substance: MUPIROCIN
  27. GENERIC MUCINEX [Concomitant]
  28. SUDOGEST [Concomitant]
     Active Substance: PSEUDOEPHEDRINE HYDROCHLORIDE
  29. CLARITIN [Concomitant]
     Active Substance: LORATADINE
  30. GAVISCON [Concomitant]
     Active Substance: ALUMINUM HYDROXIDE\MAGNESIUM CARBONATE
  31. MYLANTA [Concomitant]
     Active Substance: ALUMINUM HYDROXIDE\DIMETHICONE\MAGNESIUM HYDROXIDE
  32. NASACORT [Concomitant]
     Active Substance: TRIAMCINOLONE ACETONIDE
  33. SINUS SPRAY AND RINSE [Concomitant]
  34. VIT B [Concomitant]
     Active Substance: VITAMIN B
  35. CALCIUM [Concomitant]
     Active Substance: CALCIUM

REACTIONS (10)
  - Dyspnoea [None]
  - Hyporeflexia [None]
  - Taste disorder [None]
  - Abdominal pain upper [None]
  - Swollen tongue [None]
  - Burning sensation [None]
  - Inflammation [None]
  - Asphyxia [None]
  - Fatigue [None]
  - Choking [None]

NARRATIVE: CASE EVENT DATE: 20201026
